FAERS Safety Report 12492062 (Version 1)
Quarter: 2016Q2

REPORT INFORMATION
  Report Type: Spontaneous
  Country: US (occurrence: US)
  Receive Date: 20160623
  Receipt Date: 20160623
  Transmission Date: 20160815
  Serious: No
  Sender: FDA-Public Use
  Company Number: US-009507513-1606USA005927

PATIENT
  Age: 67 Year
  Sex: Female

DRUGS (3)
  1. BELSOMRA [Suspect]
     Active Substance: SUVOREXANT
     Dosage: 15 MG, UNK
     Route: 048
     Dates: start: 2016
  2. TRINTELLIX [Concomitant]
     Active Substance: VORTIOXETINE HYDROBROMIDE
     Dosage: 20 MG, UNK
  3. BELSOMRA [Suspect]
     Active Substance: SUVOREXANT
     Indication: INSOMNIA
     Dosage: 20 MG, UNK
     Route: 048
     Dates: start: 2016, end: 2016

REACTIONS (1)
  - Abnormal dreams [Recovered/Resolved]

NARRATIVE: CASE EVENT DATE: 201605
